FAERS Safety Report 5496833-3 (Version None)
Quarter: 2007Q4

REPORT INFORMATION
  Report Type: 
  Country: None (occurrence: None)
  Receive Date: 20071025
  Receipt Date: 20070823
  Transmission Date: 20080405
  Serious: No
  Sender: FDA-Public Use
  Company Number: A0676040A

PATIENT
  Age: 57 Year
  Sex: Male

DRUGS (4)
  1. ADVAIR DISKUS 100/50 [Suspect]
     Indication: ASTHMA
     Dosage: 1PUFF TWICE PER DAY
     Route: 055
     Dates: start: 20070726
  2. ASPIRIN [Concomitant]
  3. ZYRTEC [Concomitant]
  4. PRAVACHOL [Concomitant]

REACTIONS (1)
  - ORAL MUCOSAL BLISTERING [None]
